FAERS Safety Report 8507727-0 (Version None)
Quarter: 2012Q3

REPORT INFORMATION
  Report Type: 
  Country: None (occurrence: None)
  Receive Date: 20120709
  Receipt Date: 20120709
  Transmission Date: 20120928
  Serious: No
  Sender: FDA-Public Use
  Company Number: None

PATIENT
  Age: 43 Year
  Sex: Male
  Weight: 64.4108 kg

DRUGS (1)
  1. RECLAST [Suspect]
     Indication: OSTEOPOROSIS
     Dosage: APPROX. 5 MILLIGRAMS APPROX. 30 MINUTES IV
     Route: 042
     Dates: start: 20120701, end: 20120701

REACTIONS (13)
  - PYREXIA [None]
  - DYSPNOEA [None]
  - INFLUENZA LIKE ILLNESS [None]
  - FEELING ABNORMAL [None]
  - DRY MOUTH [None]
  - HEADACHE [None]
  - HYPOTHYROIDISM [None]
  - MYALGIA [None]
  - TREMOR [None]
  - BONE PAIN [None]
  - GASTRIC DISORDER [None]
  - OROPHARYNGEAL PAIN [None]
  - ABASIA [None]
